FAERS Safety Report 24678913 (Version 3)
Quarter: 2025Q2

REPORT INFORMATION
  Report Type: Other
  Country: CA (occurrence: CA)
  Receive Date: 20241129
  Receipt Date: 20250620
  Transmission Date: 20250717
  Serious: Yes (Other)
  Sender: APOTEX
  Company Number: CA-Searchlight Pharma-2024-CA-000231

PATIENT
  Age: 35 Year
  Sex: Male

DRUGS (27)
  1. LITHIUM CARBONATE [Suspect]
     Active Substance: LITHIUM CARBONATE
     Indication: Affective disorder
     Dosage: 900 MILLIGRAM, Q.H.S.
     Route: 048
  2. LITHIUM CARBONATE [Suspect]
     Active Substance: LITHIUM CARBONATE
     Dosage: 900 MILLIGRAM, Q.H.S.
     Route: 048
  3. ARIPIPRAZOLE [Suspect]
     Active Substance: ARIPIPRAZOLE
     Indication: Psychotic disorder
     Dosage: 10 MILLIGRAM, QD
     Route: 030
  4. ARIPIPRAZOLE [Suspect]
     Active Substance: ARIPIPRAZOLE
     Dosage: 10 MILLIGRAM, QD
     Route: 048
  5. ARIPIPRAZOLE [Suspect]
     Active Substance: ARIPIPRAZOLE
     Route: 030
  6. CLONAZEPAM [Suspect]
     Active Substance: CLONAZEPAM
     Indication: Poor quality sleep
     Route: 065
  7. CLONAZEPAM [Suspect]
     Active Substance: CLONAZEPAM
     Indication: Dystonia
     Dosage: UNK, QD
     Route: 065
  8. TEMAZEPAM [Suspect]
     Active Substance: TEMAZEPAM
     Indication: Poor quality sleep
     Route: 065
  9. ZOPICLONE [Suspect]
     Active Substance: ZOPICLONE
     Indication: Poor quality sleep
     Route: 064
  10. CHLORDIAZEPOXIDE [Suspect]
     Active Substance: CHLORDIAZEPOXIDE
     Indication: Poor quality sleep
     Route: 065
  11. LEVOMEPROMAZINE [Suspect]
     Active Substance: LEVOMEPROMAZINE
     Indication: Poor quality sleep
     Route: 065
  12. OXAZEPAM [Suspect]
     Active Substance: OXAZEPAM
     Indication: Poor quality sleep
     Route: 065
  13. QUETIAPINE FUMARATE [Suspect]
     Active Substance: QUETIAPINE FUMARATE
     Indication: Poor quality sleep
     Route: 048
  14. QUETIAPINE FUMARATE [Suspect]
     Active Substance: QUETIAPINE FUMARATE
     Indication: Bipolar I disorder
  15. QUETIAPINE FUMARATE [Suspect]
     Active Substance: QUETIAPINE FUMARATE
     Indication: Psychotic disorder
  16. BENZTROPINE [Suspect]
     Active Substance: BENZTROPINE
     Indication: Dystonic tremor
     Route: 065
  17. BENZTROPINE [Suspect]
     Active Substance: BENZTROPINE
     Indication: Dystonia
  18. LEVOMEPROMAZINE [Suspect]
     Active Substance: LEVOMEPROMAZINE
     Indication: Bipolar disorder
     Route: 065
  19. ABILIFY [Suspect]
     Active Substance: ARIPIPRAZOLE
     Indication: Psychotic disorder
     Dosage: 10 MILLIGRAM, Q.H.S.
     Route: 048
  20. LEVOMEPROMAZINE MALEATE [Suspect]
     Active Substance: LEVOMEPROMAZINE MALEATE
     Indication: Poor quality sleep
     Route: 065
  21. VORTIOXETINE [Concomitant]
     Active Substance: VORTIOXETINE
     Indication: Antidepressant therapy
     Route: 048
  22. BENZTROPINE MESYLATE [Concomitant]
     Active Substance: BENZTROPINE MESYLATE
     Indication: Dystonic tremor
     Route: 065
  23. BENZTROPINE MESYLATE [Concomitant]
     Active Substance: BENZTROPINE MESYLATE
     Indication: Dystonia
  24. LORAZEPAM [Concomitant]
     Active Substance: LORAZEPAM
     Indication: Bipolar disorder
     Route: 065
  25. SERTRALINE HYDROCHLORIDE [Concomitant]
     Active Substance: SERTRALINE HYDROCHLORIDE
     Indication: Bipolar disorder
     Route: 065
  26. SERTRALINE HYDROCHLORIDE [Concomitant]
     Active Substance: SERTRALINE HYDROCHLORIDE
     Indication: Depressed mood
  27. TRINTELLIX [Concomitant]
     Active Substance: VORTIOXETINE HYDROBROMIDE
     Indication: Antidepressant therapy
     Dosage: 10 MILLIGRAM, Q.H.S.
     Route: 048

REACTIONS (13)
  - Off label use [Unknown]
  - Drug interaction [Recovering/Resolving]
  - Dystonia [Recovering/Resolving]
  - Dystonic tremor [Recovering/Resolving]
  - Muscle contracture [Recovering/Resolving]
  - Musculoskeletal stiffness [Recovering/Resolving]
  - Product use in unapproved indication [Recovering/Resolving]
  - Foetal exposure during pregnancy [Unknown]
  - Dystonic tremor [Recovering/Resolving]
  - Tremor [Recovering/Resolving]
  - Restlessness [Recovering/Resolving]
  - Drug ineffective [Recovering/Resolving]
  - Therapeutic product effect incomplete [Unknown]
